FAERS Safety Report 18673772 (Version 1)
Quarter: 2020Q4

REPORT INFORMATION
  Report Type: Spontaneous
  Country: AT (occurrence: AT)
  Receive Date: 20201228
  Receipt Date: 20201228
  Transmission Date: 20210114
  Serious: Yes (Other)
  Sender: FDA-Public Use
  Company Number: AT-ANIPHARMA-2020-AT-000032

PATIENT
  Age: 59 Year
  Sex: Female

DRUGS (10)
  1. SEROQUEL [Suspect]
     Active Substance: QUETIAPINE FUMARATE
     Dosage: 50 MG UNK
     Route: 048
     Dates: start: 20200928, end: 20200930
  2. TEMESTA (LORAZEPAM) [Suspect]
     Active Substance: LORAZEPAM
     Dosage: 2.5 MG UNK
     Route: 065
     Dates: start: 20200921, end: 20201004
  3. RISPERDAL [Suspect]
     Active Substance: RISPERIDONE
     Dosage: 3 MG UNK
     Route: 065
     Dates: start: 20200929, end: 20201001
  4. NOMEXOR [Suspect]
     Active Substance: NEBIVOLOL HYDROCHLORIDE
     Dosage: 5 MG, UNKNOWN
     Route: 065
     Dates: start: 20200921, end: 20201004
  5. SEROQUEL [Suspect]
     Active Substance: QUETIAPINE FUMARATE
     Dosage: 100 MG UNK
     Route: 048
     Dates: start: 20200921, end: 20200927
  6. ABILIFY [Suspect]
     Active Substance: ARIPIPRAZOLE
     Dosage: 20 MG, UNK
     Route: 065
     Dates: start: 2020, end: 2020
  7. DEPAKINE [Suspect]
     Active Substance: VALPROATE SODIUM
     Dosage: 1500 MG, UNK
     Route: 065
     Dates: start: 20200926, end: 20200928
  8. DEPAKINE [Suspect]
     Active Substance: VALPROATE SODIUM
     Dosage: 2000 MG, UNK
     Route: 065
     Dates: start: 20200922, end: 20200925
  9. CANDESARTAN CILEXETIL. [Suspect]
     Active Substance: CANDESARTAN CILEXETIL
     Indication: PRODUCT USED FOR UNKNOWN INDICATION
     Dosage: 6 MG UNK
     Route: 048
     Dates: start: 20200921, end: 20201004
  10. RISPERDAL [Suspect]
     Active Substance: RISPERIDONE
     Dosage: 4 MG UNK
     Route: 065
     Dates: start: 20200925, end: 20200928

REACTIONS (4)
  - Blood glucose decreased [Unknown]
  - Psychotic behaviour [Unknown]
  - Dysphagia [Unknown]
  - Delirium [Recovered/Resolved]

NARRATIVE: CASE EVENT DATE: 2020
